FAERS Safety Report 7508128-4 (Version None)
Quarter: 2011Q2

REPORT INFORMATION
  Report Type: 
  Country: None (occurrence: None)
  Receive Date: 20110527
  Receipt Date: 20101221
  Transmission Date: 20111010
  Serious: Yes (Hospitalization, Other)
  Sender: FDA-Public Use
  Company Number: US-BAYER-200832732NA

PATIENT
  Age: 20 Year
  Sex: Female
  Weight: 64.399 kg

DRUGS (4)
  1. YAZ [Suspect]
     Indication: HEADACHE
     Dosage: DAILY CONTINUOUS
     Route: 048
     Dates: start: 20080317, end: 20080821
  2. YASMIN [Suspect]
     Indication: HEADACHE
     Dosage: UNK UNK, QD
     Route: 048
     Dates: start: 20080301, end: 20080801
  3. NAPROXEN [Concomitant]
     Dosage: UNK
     Dates: start: 20080401
  4. TOPAMAX [Concomitant]

REACTIONS (18)
  - SUPRAVENTRICULAR TACHYCARDIA [None]
  - ABDOMINAL PAIN LOWER [None]
  - MUSCULAR WEAKNESS [None]
  - URINARY TRACT INFECTION [None]
  - BLOOD DISORDER [None]
  - WEIGHT DECREASED [None]
  - PYREXIA [None]
  - HEADACHE [None]
  - PELVIC INFLAMMATORY DISEASE [None]
  - BILIARY DYSKINESIA [None]
  - NAUSEA [None]
  - PELVIC VENOUS THROMBOSIS [None]
  - MYOSITIS [None]
  - BACK PAIN [None]
  - FLANK PAIN [None]
  - VENA CAVA THROMBOSIS [None]
  - ATELECTASIS [None]
  - DEEP VEIN THROMBOSIS [None]
